FAERS Safety Report 5944045-9 (Version None)
Quarter: 2008Q4

REPORT INFORMATION
  Report Type: 
  Country: None (occurrence: None)
  Receive Date: 20081106
  Receipt Date: 20081028
  Transmission Date: 20090506
  Serious: Yes (Other)
  Sender: FDA-Public Use
  Company Number: JP-B.I. PHARMACEUTICALS,INC./RIDGEFIELD-2008-DE-06393GD

PATIENT
  Sex: Female

DRUGS (3)
  1. LANSOPRAZOLE [Suspect]
     Indication: GASTRIC ULCER
     Dosage: 30MG
  2. RANITIDINE [Suspect]
     Indication: GASTRIC ULCER
     Dosage: 300MG
  3. ECABET SODIUM [Suspect]
     Indication: GASTRIC ULCER
     Dosage: 3G

REACTIONS (1)
  - DRUG INEFFECTIVE [None]
